FAERS Safety Report 21972246 (Version 1)
Quarter: 2023Q1

REPORT INFORMATION
  Report Type: Spontaneous
  Country: US (occurrence: None)
  Receive Date: 20230207
  Receipt Date: 20230207
  Transmission Date: 20230418
  Serious: Yes (Disabling, Other)
  Sender: FDA-Public Use
  Company Number: None

PATIENT
  Age: 19 Year
  Sex: Female
  Weight: 57.15 kg

DRUGS (2)
  1. DULOXETINE [Suspect]
     Active Substance: DULOXETINE
     Indication: Depression
     Dosage: OTHER QUANTITY : 1 CAPSULE(S);?
     Route: 048
     Dates: start: 20220514, end: 20220910
  2. DULOXETINE [Suspect]
     Active Substance: DULOXETINE
     Indication: Musculoskeletal pain

REACTIONS (5)
  - Therapy change [None]
  - Sexual dysfunction [None]
  - Loss of libido [None]
  - Orgasm abnormal [None]
  - Anorgasmia [None]

NARRATIVE: CASE EVENT DATE: 20220910
